FAERS Safety Report 9351001 (Version 1)
Quarter: 2013Q2

REPORT INFORMATION
  Report Type: Spontaneous
  Country: JP (occurrence: JP)
  Receive Date: 20130617
  Receipt Date: 20130617
  Transmission Date: 20140414
  Serious: Yes (Hospitalization)
  Sender: FDA-Public Use
  Company Number: JP-EISAI INC-E3810-06486-SPO-JP

PATIENT
  Age: 77 Year
  Sex: Male

DRUGS (3)
  1. ACIPHEX (RABEPRAZOLE) [Suspect]
     Indication: PRODUCT USED FOR UNKNOWN INDICATION
     Dosage: UNKNOWN
     Route: 048
  2. ASPIRIN [Concomitant]
     Indication: CORONARY ARTERIAL STENT INSERTION
  3. CLOPIDOGREL [Concomitant]
     Indication: CORONARY ARTERIAL STENT INSERTION

REACTIONS (1)
  - Hyponatraemia [Recovering/Resolving]
